FAERS Safety Report 10667331 (Version 2)
Quarter: 2014Q4

REPORT INFORMATION
  Report Type: Report from Study
  Country: BR (occurrence: BR)
  Receive Date: 20141222
  Receipt Date: 20141222
  Transmission Date: 20150529
  Serious: Yes (Death)
  Sender: FDA-Public Use
  Company Number: PHHY2013BR042932

PATIENT
  Sex: Male
  Weight: 55 kg

DRUGS (1)
  1. SANDOSTATIN LAR DEPOT [Suspect]
     Active Substance: OCTREOTIDE ACETATE
     Indication: PROSTATE CANCER
     Dosage: 30 MG, QMO
     Route: 030
     Dates: start: 2006

REACTIONS (2)
  - Death [Fatal]
  - Product use issue [Unknown]
